FAERS Safety Report 10255963 (Version 1)
Quarter: 2014Q2

REPORT INFORMATION
  Report Type: Report from Study
  Country: US (occurrence: US)
  Receive Date: 20140624
  Receipt Date: 20140624
  Transmission Date: 20141212
  Serious: Yes (Hospitalization)
  Sender: FDA-Public Use
  Company Number: US-ACTELION-A-NJ2014-100582

PATIENT
  Age: 43 Year
  Sex: Female

DRUGS (4)
  1. VELETRI [Suspect]
     Indication: PULMONARY ARTERIAL HYPERTENSION
     Dosage: 38.6 NG/KG, PER MIN
     Route: 042
     Dates: start: 20120515
  2. OPSUMIT [Suspect]
     Indication: PULMONARY ARTERIAL HYPERTENSION
     Dosage: 10 MG, UNK
     Route: 048
     Dates: start: 201402
  3. WARFARIN [Concomitant]
  4. LETAIRIS [Concomitant]

REACTIONS (3)
  - Device dislocation [Unknown]
  - Application site reaction [Unknown]
  - Catheter site rash [Unknown]
